FAERS Safety Report 10794789 (Version 2)
Quarter: 2015Q2

REPORT INFORMATION
  Report Type: Spontaneous
  Country: US (occurrence: US)
  Receive Date: 20150213
  Receipt Date: 20150506
  Transmission Date: 20150821
  Serious: No
  Sender: FDA-Public Use
  Company Number: US-GLAXOSMITHKLINE-US2015GSK020066

PATIENT
  Sex: Male

DRUGS (2)
  1. AVODART [Suspect]
     Active Substance: DUTASTERIDE
     Indication: PROSTATOMEGALY
     Dosage: 0.5 MG, U
     Dates: start: 2010
  2. AVODART [Suspect]
     Active Substance: DUTASTERIDE
     Dosage: 0.5 MG, UNK

REACTIONS (1)
  - Sinusitis [Unknown]
